FAERS Safety Report 20855841 (Version 3)
Quarter: 2022Q3

REPORT INFORMATION
  Report Type: Report from Study
  Country: DE (occurrence: DE)
  Receive Date: 20220520
  Receipt Date: 20220829
  Transmission Date: 20221026
  Serious: Yes (Other)
  Sender: FDA-Public Use
  Company Number: DE-BRISTOL-MYERS SQUIBB COMPANY-2022-039157

PATIENT
  Age: 58 Year
  Sex: Male
  Weight: 68.7 kg

DRUGS (5)
  1. OPDIVO [Suspect]
     Active Substance: NIVOLUMAB
     Indication: Gastric cancer
     Route: 042
     Dates: start: 20220421
  2. METAMIZOLE [Concomitant]
     Active Substance: METAMIZOLE
     Indication: Adverse event
     Dosage: FOUR TIMES A DAY
     Route: 048
     Dates: start: 20220510
  3. OXALIPLATIN [Concomitant]
     Active Substance: OXALIPLATIN
     Indication: Gastric cancer
     Route: 042
     Dates: start: 20220421
  4. FLUOROURACIL [Concomitant]
     Active Substance: FLUOROURACIL
     Indication: Gastric cancer
     Route: 042
     Dates: start: 20220421
  5. DOCETAXEL [Concomitant]
     Active Substance: DOCETAXEL
     Indication: Gastric cancer
     Route: 042
     Dates: start: 20220421

REACTIONS (2)
  - Peripheral sensory neuropathy [Recovering/Resolving]
  - Peripheral motor neuropathy [Recovering/Resolving]

NARRATIVE: CASE EVENT DATE: 20220510
